FAERS Safety Report 13256065 (Version 1)
Quarter: 2017Q1

REPORT INFORMATION
  Report Type: Spontaneous
  Country: US (occurrence: US)
  Receive Date: 20170218
  Receipt Date: 20170218
  Transmission Date: 20170428
  Serious: Yes (Disabling)
  Sender: FDA-Public Use
  Company Number: None

PATIENT
  Age: 7 Year
  Sex: Male
  Weight: 26.1 kg

DRUGS (5)
  1. LACTULOSE. [Concomitant]
     Active Substance: LACTULOSE
  2. RISPERDONE [Concomitant]
     Active Substance: RISPERIDONE
  3. PROBIOTIC [Concomitant]
     Active Substance: PROBIOTICS NOS
  4. MIRALAX [Suspect]
     Active Substance: POLYETHYLENE GLYCOL 3350
     Indication: ENCOPRESIS
     Route: 048
     Dates: start: 20121001, end: 20170101
  5. ALBUTEROL. [Concomitant]
     Active Substance: ALBUTEROL

REACTIONS (3)
  - Autism [None]
  - Attention deficit/hyperactivity disorder [None]
  - Depression [None]

NARRATIVE: CASE EVENT DATE: 20121001
